FAERS Safety Report 7550257-3 (Version None)
Quarter: 2011Q2

REPORT INFORMATION
  Report Type: 
  Country: None (occurrence: None)
  Receive Date: 20110615
  Receipt Date: 20100116
  Transmission Date: 20111010
  Serious: Yes (Other)
  Sender: FDA-Public Use
  Company Number: US-BAYER-201011333NA

PATIENT
  Age: 40 Year
  Sex: Male
  Weight: 143.31 kg

DRUGS (8)
  1. ATENOLOL [Concomitant]
     Dosage: 50 MG, BID
     Route: 048
  2. PANCURONIUM [Concomitant]
     Dosage: UNK
     Route: 042
     Dates: start: 20071026, end: 20071026
  3. EPINEPHRINE [Concomitant]
     Dosage: 2-4 MCG-MIN
     Route: 042
     Dates: start: 20071026, end: 20071026
  4. ESMOLOL [Concomitant]
     Dosage: 50 MG, UNK
     Route: 042
     Dates: start: 20071026, end: 20071026
  5. MICARDIS [Concomitant]
     Dosage: 40 MG, QD
     Route: 048
  6. TRAZODONE HCL [Concomitant]
     Dosage: BEDTIME
  7. IBUPROFEN [Concomitant]
     Dosage: 400 MG, PRN
     Route: 048
  8. TRASYLOL [Suspect]
     Indication: ARTERIAL BYPASS OPERATION
     Dosage: 200 ML
     Route: 042
     Dates: start: 20071026, end: 20071026

REACTIONS (13)
  - RENAL IMPAIRMENT [None]
  - UNEVALUABLE EVENT [None]
  - DEPRESSION [None]
  - RENAL FAILURE [None]
  - RENAL INJURY [None]
  - ANXIETY [None]
  - FEAR [None]
  - PAIN [None]
  - INJURY [None]
  - CEREBROVASCULAR ACCIDENT [None]
  - ANHEDONIA [None]
  - CARDIAC DISORDER [None]
  - ORGAN FAILURE [None]
